FAERS Safety Report 14227632 (Version 1)
Quarter: 2017Q4

REPORT INFORMATION
  Report Type: Spontaneous
  Country: FR (occurrence: FR)
  Receive Date: 20171127
  Receipt Date: 20171127
  Transmission Date: 20180321
  Serious: Yes (Hospitalization, Other)
  Sender: FDA-Public Use
  Company Number: FR-PFIZER INC-2017500406

PATIENT
  Age: 1 Day
  Sex: Female
  Weight: 4 kg

DRUGS (2)
  1. PROSTINE E2 [Suspect]
     Active Substance: DINOPROSTONE
     Indication: LABOUR INDUCTION
     Dosage: UNK
     Route: 064
     Dates: start: 20091015, end: 20091015
  2. ERYTHROMYCIN. [Suspect]
     Active Substance: ERYTHROMYCIN
     Indication: STREPTOCOCCAL INFECTION
     Dosage: UNK
     Route: 064
     Dates: start: 20091015, end: 20091015

REACTIONS (1)
  - Extrasystoles [Recovered/Resolved]

NARRATIVE: CASE EVENT DATE: 20091015
